FAERS Safety Report 10215642 (Version 2)
Quarter: 2015Q4

REPORT INFORMATION
  Report Type: Spontaneous
  Country: CN (occurrence: CN)
  Receive Date: 20140604
  Receipt Date: 20151203
  Transmission Date: 20160304
  Serious: Yes (Other)
  Sender: FDA-Public Use
  Company Number: CN-PFIZER INC-2014152352

PATIENT
  Age: 79 Year
  Sex: Male

DRUGS (3)
  1. ASPIRIN ENTERIC COATED K.P. [Suspect]
     Active Substance: ASPIRIN
     Dosage: 1 DF, 1X/DAY
     Route: 048
     Dates: start: 20130113, end: 20130314
  2. ISOSORBIDE MONONITRATE. [Suspect]
     Active Substance: ISOSORBIDE MONONITRATE
     Indication: CORONARY ARTERY DISEASE
     Dosage: 1 DF, 1X/DAY
     Route: 048
     Dates: start: 20130113, end: 20130314
  3. ATORVASTATIN CALCIUM. [Suspect]
     Active Substance: ATORVASTATIN CALCIUM
     Indication: CORONARY ARTERY DISEASE
     Dosage: 1 DF, 1X/DAY
     Route: 048
     Dates: start: 20130113, end: 20130314

REACTIONS (2)
  - Peripheral swelling [Recovered/Resolved]
  - Renal impairment [Recovered/Resolved]
